FAERS Safety Report 23590788 (Version 1)
Quarter: 2024Q1

REPORT INFORMATION
  Report Type: Spontaneous
  Country: GB (occurrence: GB)
  Receive Date: 20240304
  Receipt Date: 20240304
  Transmission Date: 20240410
  Serious: Yes (Death, Other)
  Sender: FDA-Public Use
  Company Number: GB-SA-2017SA259353

PATIENT
  Age: 44 Year
  Sex: Female

DRUGS (5)
  1. COCODAMOL [Suspect]
     Active Substance: ACETAMINOPHEN\CODEINE PHOSPHATE
     Indication: Pain
     Dosage: DOSE DESCRIPTION : 28 DF,QD, [112 TABLET, FOR TWO WEEKS]
     Route: 065
  2. MORPHINE SULFATE [Suspect]
     Active Substance: MORPHINE SULFATE
     Indication: Product used for unknown indication
     Dosage: TIME INTERVAL: TOTAL: DOSE DESCRIPTION : UNK UNK,TOTAL, 6 OR 7 TABLETS; IN TOTAL, DURATION: 1 DAY...
     Route: 065
     Dates: end: 20161014
  3. ACETAMINOPHEN [Suspect]
     Active Substance: ACETAMINOPHEN
     Indication: Product used for unknown indication
     Dosage: DOSE DESCRIPTION : UNK; ;
     Route: 065
  4. ZOPICLONE [Suspect]
     Active Substance: ZOPICLONE
     Indication: Sleep disorder
     Dosage: TIME INTERVAL: TOTAL: DOSE DESCRIPTION : 14 DF,TOTAL (14 TABLET, FOR TWO WEEKS); IN TOTAL
     Route: 065
  5. PREGABALIN [Suspect]
     Active Substance: PREGABALIN
     Indication: Product used for unknown indication
     Dosage: TIME INTERVAL: TOTAL: DOSE DESCRIPTION : 3 DF,TOTAL; IN TOTAL, DURATION: 1 DAY
     Route: 065
     Dates: end: 20161015

REACTIONS (10)
  - Vision blurred [Fatal]
  - Accidental overdose [Fatal]
  - Intentional product misuse [Fatal]
  - Drug abuse [Fatal]
  - Drug diversion [Fatal]
  - Gait disturbance [Fatal]
  - Toxicity to various agents [Fatal]
  - Dysarthria [Fatal]
  - Prescription drug used without a prescription [Fatal]
  - Eye pain [Fatal]

NARRATIVE: CASE EVENT DATE: 20161001
